FAERS Safety Report 17667299 (Version 1)
Quarter: 2020Q2

REPORT INFORMATION
  Report Type: Spontaneous
  Country: US (occurrence: US)
  Receive Date: 20200414
  Receipt Date: 20200414
  Transmission Date: 20200713
  Serious: No
  Sender: FDA-Public Use
  Company Number: US-009507513-2004USA002960

PATIENT
  Sex: Female

DRUGS (1)
  1. PROVENTIL [Suspect]
     Active Substance: ALBUTEROL
     Indication: DYSPNOEA
     Dosage: 1 PUFF, EVERY 4 HOURS (Q4H)
     Dates: start: 20200318

REACTIONS (3)
  - Product quality issue [Unknown]
  - Product dose omission [Unknown]
  - Poor quality device used [Unknown]

NARRATIVE: CASE EVENT DATE: 20200318
